FAERS Safety Report 7996182-5 (Version None)
Quarter: 2011Q4

REPORT INFORMATION
  Report Type: 
  Country: None (occurrence: None)
  Receive Date: 20111220
  Receipt Date: 20111215
  Transmission Date: 20120403
  Serious: Yes (Life-Threatening, Hospitalization, Other)
  Sender: FDA-Public Use
  Company Number: PHHY2011JP70992

PATIENT
  Sex: Female
  Weight: 3 kg

DRUGS (4)
  1. TANATRIL [Suspect]
     Dosage: MATERNAL DOSE (1 DF DAILY)
     Route: 064
     Dates: start: 20110501, end: 20110516
  2. ATELEC [Concomitant]
     Route: 064
  3. ALDOMET [Concomitant]
     Dates: start: 20110516
  4. DIOVAN [Suspect]
     Indication: HYPERTENSION
     Dosage: MATERNAL DOSE
     Route: 064
     Dates: end: 20110501

REACTIONS (12)
  - KIDNEY ENLARGEMENT [None]
  - CONGENITAL CYSTIC KIDNEY DISEASE [None]
  - RENAL FAILURE [None]
  - BLOOD CREATININE INCREASED [None]
  - METABOLIC ACIDOSIS [None]
  - FOETAL EXPOSURE DURING PREGNANCY [None]
  - APNOEIC ATTACK [None]
  - PREMATURE LABOUR [None]
  - JAUNDICE [None]
  - HYPOGLYCAEMIA [None]
  - RENAL IMPAIRMENT [None]
  - HYPERBILIRUBINAEMIA [None]
